FAERS Safety Report 6316722-1 (Version None)
Quarter: 2009Q3

REPORT INFORMATION
  Report Type: 
  Country: None (occurrence: None)
  Receive Date: 20090820
  Receipt Date: 20090811
  Transmission Date: 20100115
  Serious: No
  Sender: FDA-Public Use
  Company Number: US-ELI_LILLY_AND_COMPANY-US200907002855

PATIENT

DRUGS (8)
  1. FORTEO [Suspect]
     Dosage: UNK, UNK
     Dates: start: 20090619, end: 20090701
  2. SULAR [Concomitant]
  3. PRAVASTATIN [Concomitant]
  4. ASPIRIN [Concomitant]
  5. FISH OIL [Concomitant]
  6. CLARITIN [Concomitant]
  7. MOTRIN [Concomitant]
  8. VITAMIN D [Concomitant]

REACTIONS (1)
  - NO ADVERSE EVENT [None]
